FAERS Safety Report 12963025 (Version 1)
Quarter: 2016Q4

REPORT INFORMATION
  Report Type: Spontaneous
  Country: DK (occurrence: DK)
  Receive Date: 20161122
  Receipt Date: 20161122
  Transmission Date: 20170207
  Serious: Yes (Other)
  Sender: FDA-Public Use
  Company Number: DK-UCBSA-2016043530

PATIENT
  Age: 37 Year
  Sex: Male
  Weight: 110 kg

DRUGS (6)
  1. BRIVIACT [Suspect]
     Active Substance: BRIVARACETAM
     Dosage: UNK (INCREASED DOSE)
     Route: 048
     Dates: start: 2016, end: 20161108
  2. KALEORID [Concomitant]
     Active Substance: POTASSIUM CHLORIDE
     Indication: MINERAL SUPPLEMENTATION
     Dosage: UNK
     Dates: start: 20160121
  3. BRIVIACT [Suspect]
     Active Substance: BRIVARACETAM
     Indication: EPILEPSY
     Dosage: STRENGTH: 50 MG, DOSE: 50MG + 100 MG
     Route: 048
     Dates: start: 20160905, end: 2016
  4. CENTYL MITE W/POTASSIUM CHLORIDE [Concomitant]
     Indication: HYPERTENSION
     Dosage: UNK
     Dates: start: 20160223
  5. TEGRETOL [Concomitant]
     Active Substance: CARBAMAZEPINE
     Indication: EPILEPSY
     Dosage: UNK
     Dates: start: 20130121
  6. TOPAMAX [Concomitant]
     Active Substance: TOPIRAMATE
     Indication: EPILEPSY
     Dosage: UNK
     Dates: start: 20150827

REACTIONS (4)
  - Restlessness [Not Recovered/Not Resolved]
  - Sleep disorder [Not Recovered/Not Resolved]
  - Mood swings [Not Recovered/Not Resolved]
  - Epilepsy [Not Recovered/Not Resolved]

NARRATIVE: CASE EVENT DATE: 20161015
